FAERS Safety Report 7986637 (Version 5)
Quarter: 2013Q2

REPORT INFORMATION
  Report Type: Spontaneous
  Country: US (occurrence: US)
  Receive Date: 20110610
  Receipt Date: 20130418
  Transmission Date: 20140414
  Serious: Yes (Hospitalization, Congenital Anomaly, Other)
  Sender: FDA-Public Use
  Company Number: US-RB-028671-11

PATIENT
  Age: 1 Day
  Sex: Female

DRUGS (9)
  1. SUBOXONE TABLET [Suspect]
     Indication: FIBROMYALGIA
     Dosage: 58-56 MG DAILY (ON 56MG ON 31-DEC-2009)
     Route: 064
     Dates: start: 20091228, end: 20100921
  2. SUBOXONE TABLET [Suspect]
     Indication: DRUG DEPENDENCE
     Route: 063
     Dates: start: 20100921, end: 20100925
  3. METOPROLOL/LOPRESSOR [Suspect]
     Indication: HYPERTENSION
     Route: 064
     Dates: end: 20100921
  4. METOPROLOL/LOPRESSOR [Suspect]
     Route: 063
     Dates: start: 20100921, end: 20100925
  5. VISTARIL [Suspect]
     Route: 064
     Dates: end: 20100921
  6. VISTARIL [Suspect]
     Indication: PAIN
     Route: 063
     Dates: start: 20100921, end: 20100925
  7. PRENATAL VITAMINS [Suspect]
     Indication: PREGNANCY
     Dosage: DOSING DETAILS UNKNOWN
     Route: 064
     Dates: end: 20100921
  8. FENTANYL [Suspect]
     Indication: AFTERBIRTH PAIN
     Dosage: DOSING DETAILS UNKNOWN
     Route: 063
     Dates: start: 201009, end: 201009
  9. PERCOCET [Suspect]
     Indication: AFTERBIRTH PAIN
     Dosage: 7.5/500 MG EVERY 6 HOURS AS NEEDED
     Route: 063
     Dates: start: 201009, end: 201009

REACTIONS (7)
  - Foetal exposure during pregnancy [Recovered/Resolved]
  - Exposure during breast feeding [Recovered/Resolved]
  - Apnoea neonatal [Recovered/Resolved]
  - Multiple allergies [Unknown]
  - Gastrooesophageal reflux disease [Unknown]
  - Precocious puberty [Unknown]
  - 21-hydroxylase deficiency [Not Recovered/Not Resolved]
